FAERS Safety Report 5721625-7 (Version None)
Quarter: 2008Q2

REPORT INFORMATION
  Report Type: 
  Country: None (occurrence: None)
  Receive Date: 20080429
  Receipt Date: 20080204
  Transmission Date: 20081010
  Serious: No
  Sender: FDA-Public Use
  Company Number: US-ASTRAZENECA-2004UW00392

PATIENT
  Age: 690 Month
  Sex: Female
  Weight: 77.3 kg

DRUGS (3)
  1. NEXIUM [Suspect]
     Indication: GASTROOESOPHAGEAL REFLUX DISEASE
     Route: 048
     Dates: start: 20000701
  2. NEXIUM [Suspect]
     Indication: GASTROOESOPHAGEAL SPHINCTER INSUFFICIENCY
     Route: 048
     Dates: start: 20000701
  3. WATER PILL [Concomitant]

REACTIONS (7)
  - ABDOMINAL PAIN [None]
  - ALOPECIA [None]
  - DRUG INEFFECTIVE [None]
  - FLATULENCE [None]
  - HAIR TEXTURE ABNORMAL [None]
  - IRRITABLE BOWEL SYNDROME [None]
  - NAUSEA [None]
